FAERS Safety Report 5028007-4 (Version None)
Quarter: 2006Q2

REPORT INFORMATION
  Report Type: 
  Country: None (occurrence: None)
  Receive Date: 20060616
  Receipt Date: 20060608
  Transmission Date: 20061013
  Serious: Yes (Hospitalization, Other)
  Sender: FDA-Public Use
  Company Number: 2006PK01250

PATIENT
  Age: 19197 Day
  Sex: Female
  Weight: 83 kg

DRUGS (3)
  1. NOLVADEX [Suspect]
     Indication: BREAST CANCER
     Route: 048
     Dates: start: 20020315, end: 20050311
  2. ZOLADEX [Suspect]
     Indication: BREAST CANCER
     Route: 058
     Dates: start: 20020315, end: 20050311
  3. ZOMETA [Suspect]
     Indication: BREAST CANCER
     Dates: start: 20020315, end: 20041217

REACTIONS (2)
  - ENDOMETRIAL HYPERTROPHY [None]
  - UTERINE POLYP [None]
